FAERS Safety Report 5781668-4 (Version None)
Quarter: 2008Q2

REPORT INFORMATION
  Report Type: 
  Country: None (occurrence: None)
  Receive Date: 20080623
  Receipt Date: 20080610
  Transmission Date: 20081010
  Serious: Yes (Hospitalization)
  Sender: FDA-Public Use
  Company Number: IN-ELI_LILLY_AND_COMPANY-IN200803001203

PATIENT
  Sex: Male
  Weight: 42 kg

DRUGS (30)
  1. PEMETREXED [Suspect]
     Indication: NON-SMALL CELL LUNG CANCER
     Dosage: 500 MG/M2, ON D1,22,43
     Route: 042
     Dates: start: 20080205
  2. CISPLATIN [Suspect]
     Indication: NON-SMALL CELL LUNG CANCER
     Dosage: 75 MG/M2, ON D1,8,22,29,43
     Route: 042
     Dates: start: 20080205
  3. RADIATION [Suspect]
     Indication: NON-SMALL CELL LUNG CANCER
     Dosage: 2 CENTIGRAV, ON D1-49
     Dates: start: 20080205, end: 20080303
  4. RADIATION [Suspect]
     Dosage: 2 CENTIGRAV, ON D1-49
     Dates: start: 20080307
  5. FOLIC ACID [Concomitant]
     Indication: PROPHYLAXIS
     Dosage: UNK, UNK
     Dates: start: 20080119, end: 20080416
  6. VITAMIN B-12 [Concomitant]
     Indication: PROPHYLAXIS
     Dosage: UNK, UNK
     Dates: start: 20080119, end: 20080320
  7. TRAMADOL HCL [Concomitant]
     Indication: ANALGESIC THERAPY
     Dates: start: 20080128, end: 20080303
  8. TRAMADOL HCL [Concomitant]
     Dosage: 50 MG, UNKNOWN
     Dates: start: 20080304, end: 20080304
  9. TRAMADOL HCL [Concomitant]
     Dosage: 50 MG, 3/D
     Dates: start: 20080314
  10. TRAMADOL HCL [Concomitant]
     Dosage: 100 MG, 3/D
     Dates: start: 20080420, end: 20080503
  11. TRAMADOL HCL [Concomitant]
     Dosage: 50 MG, ONCE
     Dates: start: 20080503, end: 20080509
  12. PANTOPRAZOLE SODIUM [Concomitant]
     Indication: ANTACID THERAPY
     Dates: start: 20080206, end: 20080303
  13. PANTOPRAZOLE SODIUM [Concomitant]
     Route: 048
     Dates: start: 20080402, end: 20080406
  14. PANTOPRAZOLE SODIUM [Concomitant]
     Dosage: 40 MG, DAILY (1/D)
     Dates: start: 20080503, end: 20080509
  15. PANTOPRAZOLE SODIUM [Concomitant]
     Dosage: 40 MG, DAILY (1/D)
     Dates: start: 20080419, end: 20080503
  16. PANTOPRAZOLE SODIUM [Concomitant]
     Indication: OESOPHAGITIS
     Dosage: 2 UNITS
     Route: 042
  17. DOMPERIDONE [Concomitant]
     Indication: ANTIEMETIC SUPPORTIVE CARE
     Dates: start: 20080205, end: 20080303
  18. DOMPERIDONE [Concomitant]
     Dosage: 10 MG, 3/D
     Dates: start: 20080310
  19. PIROXICAM                          /00500401/ [Concomitant]
     Indication: ANALGESIC THERAPY
     Dates: start: 20080101, end: 20080127
  20. RANITIDINE                         /00550801/ [Concomitant]
     Indication: ANTACID THERAPY
     Dates: start: 20080101, end: 20080205
  21. IRON POLYMALTOSE [Concomitant]
     Dates: start: 20080202, end: 20080219
  22. SUCRALFATE [Concomitant]
     Indication: ANALGESIC THERAPY
     Dates: start: 20080213, end: 20080303
  23. SUCRALFATE [Concomitant]
     Dosage: 3 D/F, 3/D
     Dates: start: 20080314
  24. OXETACAINE [Concomitant]
     Indication: ANALGESIC THERAPY
     Dates: start: 20080213, end: 20080303
  25. OXETACAINE [Concomitant]
     Dosage: 3 D/F, 3/D
     Dates: start: 20080314
  26. ASPIRIN [Concomitant]
     Indication: ANALGESIC THERAPY
     Dates: start: 20080213, end: 20080303
  27. DEXTROMETHORPHAN [Concomitant]
     Indication: ANTITUSSIVE THERAPY
     Dates: start: 20080219, end: 20080303
  28. CHLORPHENIRAMINE MALEATE [Concomitant]
     Indication: ANTITUSSIVE THERAPY
     Dates: start: 20080219, end: 20080303
  29. GUAIFENESIN [Concomitant]
     Indication: ANTITUSSIVE THERAPY
     Dates: start: 20080219, end: 20080303
  30. AMMONIUM CHLORIDE                  /00178201/ [Concomitant]
     Indication: ANTITUSSIVE THERAPY
     Dates: start: 20080219, end: 20080303

REACTIONS (3)
  - FEBRILE NEUTROPENIA [None]
  - MEDIASTINITIS [None]
  - OESOPHAGITIS [None]
